FAERS Safety Report 7652501-0 (Version None)
Quarter: 2011Q3

REPORT INFORMATION
  Report Type: 
  Country: None (occurrence: None)
  Receive Date: 20110803
  Receipt Date: 20110729
  Transmission Date: 20111222
  Serious: Yes (Hospitalization)
  Sender: FDA-Public Use
  Company Number: NZ-B.I. PHARMACEUTICALS,INC./RIDGEFIELD-2011-AU-00609AU

PATIENT
  Sex: Male

DRUGS (5)
  1. PRADAXA [Suspect]
     Indication: ATRIAL FIBRILLATION
     Dosage: 220 MG
     Dates: start: 20110701, end: 20110728
  2. LISINOPRIL [Concomitant]
     Dosage: 2.5 MG
  3. METOPROLOL SUCCINATE [Concomitant]
  4. DIGOXIN [Concomitant]
     Dosage: 250 MCG
  5. AUGMENTIN '125' [Concomitant]
     Dosage: 1875 MG
     Dates: start: 20110725

REACTIONS (2)
  - HAEMATURIA [None]
  - SEPSIS [None]
